FAERS Safety Report 6074300-6 (Version None)
Quarter: 2009Q1

REPORT INFORMATION
  Report Type: 
  Country: None (occurrence: None)
  Receive Date: 20090211
  Receipt Date: 20090130
  Transmission Date: 20090719
  Serious: Yes (Death, Other)
  Sender: FDA-Public Use
  Company Number: US-ELI_LILLY_AND_COMPANY-US200901005658

PATIENT
  Age: 65 Year
  Sex: Male

DRUGS (4)
  1. ZYPREXA [Suspect]
  2. DEPAKOTE [Concomitant]
  3. ACTOS [Concomitant]
  4. METFORMIN HCL [Concomitant]

REACTIONS (3)
  - DEATH [None]
  - FAECAL INCONTINENCE [None]
  - HOSPICE CARE [None]
